FAERS Safety Report 15240005 (Version 1)
Quarter: 2018Q3

REPORT INFORMATION
  Report Type: Spontaneous
  Country: US (occurrence: US)
  Receive Date: 20180710
  Receipt Date: 20180710
  Transmission Date: 20181010
  Serious: Yes (Other)
  Sender: FDA-Public Use
  Company Number: None

PATIENT
  Age: 79 Year
  Sex: Female
  Weight: 71.55 kg

DRUGS (6)
  1. METFORMIN [Concomitant]
     Active Substance: METFORMIN HYDROCHLORIDE
  2. IBRANCE [Suspect]
     Active Substance: PALBOCICLIB
     Indication: BREAST CANCER
     Route: 048
     Dates: start: 20170426
  3. ENALAPRIL [Concomitant]
     Active Substance: ENALAPRIL
  4. SIMVASTATIN. [Concomitant]
     Active Substance: SIMVASTATIN
  5. ALENDRONATE [Concomitant]
     Active Substance: ALENDRONATE SODIUM
  6. ATENOLOL. [Concomitant]
     Active Substance: ATENOLOL

REACTIONS (1)
  - Alopecia [None]
